FAERS Safety Report 13437288 (Version 1)
Quarter: 2017Q2

REPORT INFORMATION
  Report Type: Spontaneous
  Country: JP (occurrence: JP)
  Receive Date: 20170413
  Receipt Date: 20170413
  Transmission Date: 20170830
  Serious: Yes (Death)
  Sender: FDA-Public Use
  Company Number: JP-ELI_LILLY_AND_COMPANY-JP201702001120

PATIENT

DRUGS (2)
  1. CYRAMZA [Suspect]
     Active Substance: RAMUCIRUMAB
     Indication: LUNG NEOPLASM MALIGNANT
     Route: 042
  2. DOCETAXEL. [Concomitant]
     Active Substance: DOCETAXEL
     Indication: LUNG NEOPLASM MALIGNANT

REACTIONS (3)
  - Death [Fatal]
  - Mucous membrane disorder [Recovering/Resolving]
  - Febrile neutropenia [Recovered/Resolved]
